FAERS Safety Report 6248579-1 (Version None)
Quarter: 2009Q2

REPORT INFORMATION
  Report Type: 
  Country: None (occurrence: None)
  Receive Date: 20090624
  Receipt Date: 20090624
  Transmission Date: 20091009
  Serious: Yes (Life-Threatening)
  Sender: FDA-Public Use
  Company Number: None

PATIENT
  Age: 88 Year
  Sex: Female

DRUGS (2)
  1. FENTANYL [Suspect]
     Indication: SEDATIVE THERAPY
     Dosage: 500MCG IV X 1
     Route: 042
     Dates: start: 20090427
  2. VERSED [Concomitant]

REACTIONS (2)
  - OXYGEN SATURATION DECREASED [None]
  - RESPIRATORY DISORDER [None]
